FAERS Safety Report 6256329-8 (Version None)
Quarter: 2009Q2

REPORT INFORMATION
  Report Type: 
  Country: None (occurrence: None)
  Receive Date: 20090630
  Receipt Date: 20090630
  Transmission Date: 20091009
  Serious: Yes (Other)
  Sender: FDA-Public Use
  Company Number: None

PATIENT
  Age: 53 Year
  Sex: Female
  Weight: 74.3899 kg

DRUGS (1)
  1. GENERIC NAME: ALENDRONATE [Suspect]

REACTIONS (12)
  - ARTHRALGIA [None]
  - BONE PAIN [None]
  - DIZZINESS [None]
  - ERYTHEMA [None]
  - HEADACHE [None]
  - HYPOAESTHESIA FACIAL [None]
  - LYMPHADENOPATHY [None]
  - PAIN IN EXTREMITY [None]
  - ROAD TRAFFIC ACCIDENT [None]
  - SWELLING FACE [None]
  - TEMPOROMANDIBULAR JOINT SYNDROME [None]
  - TRIGEMINAL NERVE DISORDER [None]
